FAERS Safety Report 9498685 (Version 1)
Quarter: 2013Q3

REPORT INFORMATION
  Report Type: Spontaneous
  Country: AT (occurrence: AT)
  Receive Date: 20130904
  Receipt Date: 20130904
  Transmission Date: 20140515
  Serious: Yes (Hospitalization)
  Sender: FDA-Public Use
  Company Number: AT-ABBOTT-13P-009-1140002-00

PATIENT
  Age: 79 Year
  Sex: Female

DRUGS (3)
  1. HUMIRA [Suspect]
     Indication: RHEUMATOID ARTHRITIS
     Route: 058
     Dates: start: 201204, end: 201304
  2. EBETREXAT [Suspect]
     Indication: RHEUMATOID ARTHRITIS
     Dosage: 25MG IN ONE WEEK
     Route: 048
     Dates: start: 201007, end: 201304
  3. PREDNISOLONE [Concomitant]
     Indication: RHEUMATOID ARTHRITIS
     Route: 048
     Dates: start: 201209, end: 201305

REACTIONS (2)
  - Pneumonitis [Recovered/Resolved]
  - Bronchitis [Recovered/Resolved]
